FAERS Safety Report 5075813-6 (Version None)
Quarter: 2006Q3

REPORT INFORMATION
  Report Type: 
  Country: None (occurrence: None)
  Receive Date: 20060809
  Receipt Date: 20060731
  Transmission Date: 20061208
  Serious: Yes (Life-Threatening)
  Sender: FDA-Public Use
  Company Number: FR-GLAXOSMITHKLINE-B0432709A

PATIENT
  Age: 54 Year
  Sex: Female

DRUGS (3)
  1. AUGMENTIN '125' [Suspect]
     Indication: SINUSITIS
     Route: 042
     Dates: start: 20060101, end: 20060101
  2. AMOXICILLIN [Suspect]
     Dosage: 250MG PER DAY
     Route: 065
     Dates: start: 20060530
  3. AVLOCARDYL [Concomitant]
     Route: 048

REACTIONS (5)
  - ANGIONEUROTIC OEDEMA [None]
  - DYSPHONIA [None]
  - PHARYNGOLARYNGEAL DISCOMFORT [None]
  - PHARYNGOLARYNGEAL PAIN [None]
  - SNEEZING [None]
